FAERS Safety Report 15621037 (Version 1)
Quarter: 2018Q4

REPORT INFORMATION
  Report Type: Spontaneous
  Country: US (occurrence: US)
  Receive Date: 20181109
  Receipt Date: 20181109
  Transmission Date: 20190205
  Serious: Yes (Hospitalization)
  Sender: FDA-Public Use
  Company Number: None

PATIENT
  Sex: Female

DRUGS (14)
  1. RESTASIS/ALPRAZOLAM [Concomitant]
  2. WELCHOL/AMBIEN [Concomitant]
  3. MYRBETRIQ/LEFLUNOMIDE [Concomitant]
  4. METHOTREXATE/CYCLOBENZSOR [Concomitant]
  5. IRON/YUVAFEM [Concomitant]
  6. HUMIRA [Suspect]
     Active Substance: ADALIMUMAB
     Indication: RHEUMATOID ARTHRITIS
     Route: 058
     Dates: start: 20170208
  7. ARMOUR THYROID/CYMBALTA [Concomitant]
  8. TESTOST CYP/TOPIRAMAFE [Concomitant]
  9. NUVIGIL/CELECOXIB [Concomitant]
  10. MULTIVATAMIN/CEVIMELINA [Concomitant]
  11. FOLIC ACID. [Concomitant]
     Active Substance: FOLIC ACID
  12. FLUTICASON [Concomitant]
     Active Substance: FLUTICASONE
  13. PAZEO/METANX [Concomitant]
  14. FISH OIL [Concomitant]
     Active Substance: FISH OIL

REACTIONS (2)
  - Surgery [None]
  - Product dose omission [None]
